FAERS Safety Report 8564564 (Version 2)
Quarter: 2014Q1

REPORT INFORMATION
  Report Type: Report from Study
  Country: US (occurrence: US)
  Receive Date: 20120516
  Receipt Date: 20140124
  Transmission Date: 20141002
  Serious: Yes (Life-Threatening, Hospitalization, Other)
  Sender: FDA-Public Use
  Company Number: US-ALEXION-A201101912

PATIENT
  Sex: Female

DRUGS (2)
  1. SOLIRIS [Suspect]
     Indication: DISSEMINATED INTRAVASCULAR COAGULATION
     Dosage: UNK
     Route: 042
     Dates: start: 20111215, end: 20111215
  2. SOLIRIS [Suspect]
     Indication: OFF LABEL USE

REACTIONS (7)
  - Cardio-respiratory arrest [Unknown]
  - Renal failure [Unknown]
  - Diarrhoea [Unknown]
  - Mental status changes [Unknown]
  - Blood lactate dehydrogenase increased [Unknown]
  - Off label use [Unknown]
  - Infusion related reaction [Unknown]
